FAERS Safety Report 4966076-8 (Version None)
Quarter: 2006Q2

REPORT INFORMATION
  Report Type: 
  Country: None (occurrence: None)
  Receive Date: 20060403
  Receipt Date: 20060320
  Transmission Date: 20061013
  Serious: Yes (Death)
  Sender: FDA-Public Use
  Company Number: 2006039294

PATIENT
  Age: 90 Year
  Sex: Female

DRUGS (2)
  1. SULPERAZONE  (SULBACTAM, CEFOPERAZONE) [Suspect]
     Indication: SEPSIS
     Dosage: 1.5 GRAM (1.5 GRAM, ONCE), INTRAVENOUS
     Route: 042
     Dates: start: 20060308, end: 20060308
  2. AZITHROMYCIN [Concomitant]

REACTIONS (2)
  - CARDIAC ARREST [None]
  - DEPRESSED LEVEL OF CONSCIOUSNESS [None]
